FAERS Safety Report 15012179 (Version 1)
Quarter: 2018Q2

REPORT INFORMATION
  Report Type: Spontaneous
  Country: DE (occurrence: DE)
  Receive Date: 20180614
  Receipt Date: 20180614
  Transmission Date: 20180711
  Serious: Yes (Other)
  Sender: FDA-Public Use
  Company Number: DE-ALLERGAN-1830430US

PATIENT
  Age: 41 Year
  Sex: Female
  Weight: 59 kg

DRUGS (2)
  1. L-THYROXIN [Concomitant]
     Active Substance: LEVOTHYROXINE SODIUM
     Indication: HYPOTHYROIDISM
     Dosage: 75 ?G, QD
     Route: 065
  2. VISTABEL [Suspect]
     Active Substance: BOTULINUM TOXIN TYPE A
     Indication: PRODUCT USED FOR UNKNOWN INDICATION
     Dosage: UNK UNK, SINGLE
     Route: 042

REACTIONS (24)
  - Hyperacusis [Unknown]
  - Disease recurrence [Unknown]
  - Photosensitivity reaction [Unknown]
  - Disturbance in attention [Unknown]
  - Dysphagia [Unknown]
  - Central nervous system lesion [Unknown]
  - Alcohol intolerance [Unknown]
  - Dyspepsia [Unknown]
  - Dysarthria [Unknown]
  - Fatigue [Unknown]
  - General physical health deterioration [Unknown]
  - Neuropathy peripheral [Unknown]
  - Feeling abnormal [Unknown]
  - Caffeine allergy [Unknown]
  - Neuralgia [Unknown]
  - Aphasia [Unknown]
  - Muscular weakness [Unknown]
  - Nerve injury [Unknown]
  - Weight decreased [Unknown]
  - Memory impairment [Unknown]
  - Dyspnoea [Unknown]
  - Incorrect route of drug administration [Unknown]
  - Bedridden [Unknown]
  - Drug intolerance [Unknown]

NARRATIVE: CASE EVENT DATE: 20171004
